FAERS Safety Report 5128758-7 (Version None)
Quarter: 2006Q4

REPORT INFORMATION
  Report Type: 
  Country: None (occurrence: None)
  Receive Date: 20061017
  Receipt Date: 20061011
  Transmission Date: 20070319
  Serious: Yes (Death)
  Sender: FDA-Public Use
  Company Number: US-MERCK-0610USA09235

PATIENT
  Age: 32 Year
  Sex: Male

DRUGS (5)
  1. DECADRON [Suspect]
     Indication: NON-HODGKIN'S LYMPHOMA STAGE I
     Route: 048
  2. HYDROXYUREA [Concomitant]
     Indication: NON-HODGKIN'S LYMPHOMA STAGE I
     Route: 065
  3. CYTARABINE [Concomitant]
     Indication: NON-HODGKIN'S LYMPHOMA STAGE I
     Route: 065
  4. CISPLATIN [Concomitant]
     Indication: NON-HODGKIN'S LYMPHOMA STAGE I
     Route: 065
  5. DOXORUBICIN [Concomitant]
     Indication: NON-HODGKIN'S LYMPHOMA STAGE I
     Route: 065

REACTIONS (2)
  - PNEUMONIA [None]
  - SEPSIS [None]
